FAERS Safety Report 11117885 (Version 1)
Quarter: 2015Q2

REPORT INFORMATION
  Report Type: Spontaneous
  Country: US (occurrence: None)
  Receive Date: 20150515
  Receipt Date: 20150515
  Transmission Date: 20150821
  Serious: No
  Sender: FDA-Public Use
  Company Number: None

PATIENT
  Age: 62 Year
  Sex: Female

DRUGS (1)
  1. FORTEO [Suspect]
     Active Substance: TERIPARATIDE
     Indication: SENILE OSTEOPOROSIS
     Dosage: SQ
     Route: 058
     Dates: start: 20140424

REACTIONS (2)
  - Urinary incontinence [None]
  - Bladder disorder [None]

NARRATIVE: CASE EVENT DATE: 20150513
